FAERS Safety Report 7577673-8 (Version None)
Quarter: 2011Q2

REPORT INFORMATION
  Report Type: 
  Country: None (occurrence: None)
  Receive Date: 20110628
  Receipt Date: 20110616
  Transmission Date: 20111010
  Serious: Yes (Hospitalization)
  Sender: FDA-Public Use
  Company Number: DE-CELGENEUS-062-21880-11051428

PATIENT
  Age: 74 Year
  Sex: Male
  Weight: 78 kg

DRUGS (5)
  1. GRANOCYT [Suspect]
     Indication: MULTIPLE MYELOMA
     Dosage: 340 MICROGRAM
     Route: 058
     Dates: start: 20110422, end: 20110501
  2. DEXAMETHASONE [Suspect]
     Indication: MULTIPLE MYELOMA
     Dosage: 40 MILLIGRAM
     Route: 048
     Dates: start: 20110110
  3. CYCLOPHOSPHAMIDE [Suspect]
     Indication: MULTIPLE MYELOMA
     Route: 065
     Dates: start: 20110418
  4. REVLIMID [Suspect]
     Indication: MULTIPLE MYELOMA
     Dosage: 25 MILLIGRAM
     Route: 048
     Dates: start: 20110110, end: 20110511
  5. ETOPOSIDE [Suspect]
     Indication: MULTIPLE MYELOMA
     Route: 065
     Dates: start: 20110418

REACTIONS (2)
  - IMPAIRED HEALING [None]
  - CHOLECYSTITIS [None]
